FAERS Safety Report 8415083-1 (Version None)
Quarter: 2012Q2

REPORT INFORMATION
  Report Type: 
  Country: None (occurrence: None)
  Receive Date: 20120606
  Receipt Date: 20120525
  Transmission Date: 20120825
  Serious: Yes (Other)
  Sender: FDA-Public Use
  Company Number: CA-JNJFOC-20120406349

PATIENT
  Sex: Female
  Weight: 89 kg

DRUGS (11)
  1. REMICADE [Suspect]
     Route: 042
     Dates: start: 20110420
  2. REMICADE [Suspect]
     Route: 042
     Dates: start: 20111122
  3. REMICADE [Suspect]
     Route: 042
     Dates: start: 20120401
  4. REMICADE [Suspect]
     Route: 042
     Dates: start: 20110601
  5. REMICADE [Suspect]
     Route: 042
     Dates: start: 20120525
  6. REMICADE [Suspect]
     Indication: CROHN'S DISEASE
     Route: 042
     Dates: start: 20110926
  7. REMICADE [Suspect]
     Route: 042
     Dates: start: 20110727
  8. REMICADE [Suspect]
     Route: 042
     Dates: start: 20120105
  9. REMICADE [Suspect]
     Route: 042
     Dates: start: 20110506
  10. SYNPHASIC [Concomitant]
     Indication: CONTRACEPTION
     Route: 065
  11. REMICADE [Suspect]
     Route: 042
     Dates: start: 20120223

REACTIONS (9)
  - PERINEAL FISTULA [None]
  - IMPAIRED HEALING [None]
  - FATIGUE [None]
  - MATERNAL EXPOSURE DURING PREGNANCY [None]
  - FISTULA DISCHARGE [None]
  - NAUSEA [None]
  - PREGNANCY [None]
  - PERINEAL ABSCESS [None]
  - ABORTION INDUCED [None]
